FAERS Safety Report 8777464 (Version 7)
Quarter: 2013Q2

REPORT INFORMATION
  Report Type: Report from Study
  Country: AU (occurrence: AU)
  Receive Date: 20120913
  Receipt Date: 20130613
  Transmission Date: 20140414
  Serious: Yes (Other)
  Sender: FDA-Public Use
  Company Number: AU-CELGENEUS-008-C5013-12090045

PATIENT
  Age: 84 Year
  Sex: Male

DRUGS (6)
  1. CC-5013 [Suspect]
     Indication: PLASMA CELL MYELOMA
     Route: 048
     Dates: start: 20091222, end: 20100111
  2. CC-5013 [Suspect]
     Route: 048
     Dates: start: 20120221, end: 20120319
  3. CC-5013 [Suspect]
     Route: 048
     Dates: start: 20120501
  4. DEXAMETHASONE [Suspect]
     Indication: PLASMA CELL MYELOMA
     Route: 065
     Dates: start: 20091222, end: 20100118
  5. DEXAMETHASONE [Suspect]
     Route: 065
     Dates: start: 20120221, end: 20120319
  6. DEXAMETHASONE [Suspect]
     Route: 065
     Dates: start: 20120501

REACTIONS (2)
  - Squamous cell carcinoma of skin [Recovered/Resolved]
  - Bowen^s disease [Recovered/Resolved]
